FAERS Safety Report 20138400 (Version 2)
Quarter: 2022Q1

REPORT INFORMATION
  Report Type: Spontaneous
  Country: US (occurrence: None)
  Receive Date: 20211202
  Receipt Date: 20220104
  Transmission Date: 20220423
  Serious: No
  Sender: FDA-Public Use
  Company Number: 2021A808363

PATIENT
  Age: 23230 Day
  Sex: Female

DRUGS (1)
  1. CALQUENCE [Suspect]
     Active Substance: ACALABRUTINIB
     Indication: Chronic lymphocytic leukaemia
     Route: 048

REACTIONS (21)
  - Dyspnoea [Unknown]
  - Pain [Unknown]
  - Illness [Unknown]
  - Lung disorder [Unknown]
  - Drug hypersensitivity [Unknown]
  - COVID-19 [Unknown]
  - Urticaria [Unknown]
  - Parosmia [Unknown]
  - Frustration tolerance decreased [Unknown]
  - General physical health deterioration [Unknown]
  - Scab [Unknown]
  - Abdominal discomfort [Unknown]
  - Feeling abnormal [Unknown]
  - Chronic obstructive pulmonary disease [Unknown]
  - Headache [Unknown]
  - Pneumonia [Unknown]
  - Rash [Unknown]
  - Arthralgia [Unknown]
  - Nasopharyngitis [Unknown]
  - Infection [Unknown]
  - Fatigue [Unknown]

NARRATIVE: CASE EVENT DATE: 20210919
